FAERS Safety Report 4405449-9 (Version None)
Quarter: 2004Q3

REPORT INFORMATION
  Report Type: 
  Country: None (occurrence: None)
  Receive Date: 20040723
  Receipt Date: 20030827
  Transmission Date: 20050211
  Serious: Yes (Other)
  Sender: FDA-Public Use
  Company Number: US-GLAXOSMITHKLINE-A0423729A

PATIENT
  Age: 79 Year
  Sex: Female

DRUGS (8)
  1. AVANDIA [Suspect]
     Indication: ILL-DEFINED DISORDER
     Dosage: 1MG IN THE MORNING
     Route: 048
     Dates: start: 20030401
  2. VITAMIN [Concomitant]
  3. MEVACOR [Concomitant]
  4. NORTRIPTYLINE HCL [Concomitant]
  5. MOBIC [Concomitant]
  6. LOPRESSOR [Concomitant]
  7. VASERETIC [Concomitant]
  8. TRICOR [Concomitant]

REACTIONS (1)
  - LIPIDS INCREASED [None]
